FAERS Safety Report 14140701 (Version 4)
Quarter: 2021Q4

REPORT INFORMATION
  Report Type: Spontaneous
  Country: US (occurrence: US)
  Receive Date: 20171030
  Receipt Date: 20211206
  Transmission Date: 20220303
  Serious: Yes (Other)
  Sender: FDA-Public Use
  Company Number: US-PFIZER INC-2017465830

PATIENT
  Age: 62 Year
  Sex: Female

DRUGS (2)
  1. XELJANZ XR [Suspect]
     Active Substance: TOFACITINIB CITRATE
     Indication: Rheumatoid arthritis
     Dosage: 11 MG, DAILY
     Route: 048
     Dates: start: 20170921
  2. METHOTREXATE [Concomitant]
     Active Substance: METHOTREXATE
     Dosage: UNK
     Route: 048

REACTIONS (6)
  - Myocardial infarction [Unknown]
  - Headache [Recovered/Resolved]
  - Malaise [Unknown]
  - Sensitivity to weather change [Unknown]
  - Arthralgia [Unknown]
  - Product use issue [Unknown]

NARRATIVE: CASE EVENT DATE: 20171001
